FAERS Safety Report 14000461 (Version 2)
Quarter: 2017Q4

REPORT INFORMATION
  Report Type: Spontaneous
  Country: US (occurrence: US)
  Receive Date: 20170922
  Receipt Date: 20171003
  Transmission Date: 20180321
  Serious: Yes (Death, Hospitalization)
  Sender: FDA-Public Use
  Company Number: US-JNJFOC-20170701290

PATIENT
  Age: 82 Year
  Sex: Male

DRUGS (3)
  1. XARELTO [Suspect]
     Active Substance: RIVAROXABAN
     Indication: CEREBROVASCULAR ACCIDENT PROPHYLAXIS
     Dosage: 20 MG ONE-HALF TABLET DAILY
     Route: 048
     Dates: start: 20130824, end: 20150705
  2. XARELTO [Suspect]
     Active Substance: RIVAROXABAN
     Indication: THROMBOSIS PROPHYLAXIS
     Dosage: 20 MG ONE-HALF TABLET DAILY
     Route: 048
     Dates: start: 20130824, end: 20150705
  3. XARELTO [Suspect]
     Active Substance: RIVAROXABAN
     Indication: ATRIAL FIBRILLATION
     Dosage: 20 MG ONE-HALF TABLET DAILY
     Route: 048
     Dates: start: 20130824, end: 20150705

REACTIONS (5)
  - Haematoma [Unknown]
  - Cellulitis [Fatal]
  - Off label use [Unknown]
  - Product use issue [Unknown]
  - Sepsis [Fatal]

NARRATIVE: CASE EVENT DATE: 20130824
